FAERS Safety Report 4352588-7 (Version None)
Quarter: 2004Q2

REPORT INFORMATION
  Report Type: 
  Country: None (occurrence: None)
  Receive Date: 20040503
  Receipt Date: 20040503
  Transmission Date: 20050107
  Serious: Yes (Life-Threatening)
  Sender: FDA-Public Use
  Company Number: None

PATIENT
  Age: 48 Year
  Sex: Female
  Weight: 84.369 kg

DRUGS (5)
  1. DURAGESIC [Suspect]
     Indication: POST HERPETIC NEURALGIA
     Dosage: 1 EVERY 3 DAYS
  2. ELAVIL [Concomitant]
  3. ESTRATEST [Concomitant]
  4. PAXIL [Concomitant]
  5. QUININE [Concomitant]

REACTIONS (8)
  - ASTHENIA [None]
  - CARDIO-RESPIRATORY ARREST [None]
  - DYSPNOEA [None]
  - FEELING ABNORMAL [None]
  - LOSS OF CONSCIOUSNESS [None]
  - MOBILITY DECREASED [None]
  - PAIN [None]
  - PHARMACEUTICAL PRODUCT COMPLAINT [None]
